FAERS Safety Report 5910425-0 (Version None)
Quarter: 2008Q4

REPORT INFORMATION
  Report Type: 
  Country: None (occurrence: None)
  Receive Date: 20081007
  Receipt Date: 20080923
  Transmission Date: 20090506
  Serious: Yes (Hospitalization)
  Sender: FDA-Public Use
  Company Number: ES-ELI_LILLY_AND_COMPANY-ES200809005323

PATIENT
  Age: 74 Year
  Sex: Female

DRUGS (9)
  1. FORTEO [Suspect]
     Indication: OSTEOPOROSIS
     Dosage: 20 UG, DAILY (1/D)
     Route: 058
     Dates: start: 20080603, end: 20080717
  2. EVISTA [Suspect]
     Indication: OSTEOPOROSIS
     Dosage: UNK, UNKNOWN
     Route: 048
     Dates: start: 20031029
  3. OMEPRAZOLE [Concomitant]
     Dosage: UNK, UNKNOWN
     Route: 065
     Dates: start: 20030101
  4. CALCIUM [Concomitant]
     Dosage: UNK, UNKNOWN
     Route: 065
     Dates: start: 20070101
  5. FENTANYL [Concomitant]
     Indication: PAIN
     Dosage: 75 UG, 2/W
     Route: 065
     Dates: start: 20080614
  6. CLOPIDOGREL [Concomitant]
     Indication: ATRIAL FIBRILLATION
     Dosage: UNK, UNKNOWN
     Route: 048
     Dates: start: 20031029
  7. REQUIP [Concomitant]
     Indication: PARKINSON'S DISEASE
     Dosage: UNK, UNKNOWN
     Route: 048
     Dates: start: 20070101
  8. SINEMET [Concomitant]
     Indication: PARKINSON'S DISEASE
     Dosage: UNK, UNKNOWN
     Route: 048
     Dates: start: 20070101
  9. STALEVO 100 [Concomitant]
     Indication: PARKINSON'S DISEASE
     Dosage: UNK, UNKNOWN
     Route: 048
     Dates: start: 20070101

REACTIONS (1)
  - ARTERIAL THROMBOSIS LIMB [None]
